FAERS Safety Report 6301945-8 (Version None)
Quarter: 2009Q3

REPORT INFORMATION
  Report Type: 
  Country: None (occurrence: None)
  Receive Date: 20090807
  Receipt Date: 20090729
  Transmission Date: 20100115
  Serious: Yes (Other)
  Sender: FDA-Public Use
  Company Number: ES-WYE-H10423409

PATIENT
  Age: 82 Year
  Sex: Female

DRUGS (5)
  1. PANTECTA [Suspect]
     Indication: DYSPEPSIA
     Route: 048
     Dates: start: 20080401
  2. ACREL SEMANAL [Suspect]
     Indication: BACK PAIN
     Route: 048
     Dates: start: 20080401
  3. ARTILOG [Suspect]
     Indication: BACK PAIN
     Dosage: 200 MG, FREQUENCY UNKNOWN
     Route: 048
     Dates: start: 20080401
  4. HYZAAR [Suspect]
     Indication: HYPERTENSION
     Dosage: 1 DOSAGE FORM, FREQUENCY UNKNOWN
     Route: 048
     Dates: start: 20080101
  5. CARDYL [Suspect]
     Dosage: 40 MG, FREQUENCY UNKNOWN
     Route: 048
     Dates: start: 20080201

REACTIONS (2)
  - CEREBRAL INFARCTION [None]
  - TRANSIENT ISCHAEMIC ATTACK [None]
